FAERS Safety Report 21232806 (Version 2)
Quarter: 2022Q3

REPORT INFORMATION
  Report Type: Spontaneous
  Country: US (occurrence: None)
  Receive Date: 20220819
  Receipt Date: 20220822
  Transmission Date: 20221026
  Serious: Yes (Other)
  Sender: FDA-Public Use
  Company Number: US-ROCHE-3161523

PATIENT
  Age: 36 Year
  Sex: Male

DRUGS (3)
  1. OCREVUS [Suspect]
     Active Substance: OCRELIZUMAB
     Indication: Product used for unknown indication
     Dosage: HIS LAST INFUSION MARCH 2020.
     Route: 065
     Dates: start: 201903
  2. RITUXAN [Suspect]
     Active Substance: RITUXIMAB
     Indication: Product used for unknown indication
     Route: 065
  3. OZANIMOD [Concomitant]
     Active Substance: OZANIMOD

REACTIONS (2)
  - Immune-mediated enterocolitis [Unknown]
  - B-lymphocyte count decreased [Unknown]
